FAERS Safety Report 24104740 (Version 2)
Quarter: 2024Q3

REPORT INFORMATION
  Report Type: Report from Study
  Country: US (occurrence: US)
  Receive Date: 20240717
  Receipt Date: 20240815
  Transmission Date: 20241017
  Serious: Yes (Other)
  Sender: MERCK
  Company Number: US-009507513-2406USA002013

PATIENT
  Sex: Female
  Weight: 71.202 kg

DRUGS (8)
  1. SOTATERCEPT [Suspect]
     Active Substance: SOTATERCEPT
     Dosage: 1 MILLILITER, Q3W, 45 MG
     Route: 058
     Dates: start: 20240506
  2. WINREVAIR [Suspect]
     Active Substance: SOTATERCEPT-CSRK
     Indication: Pulmonary arterial hypertension
     Dosage: 0.4 MILLILITER, Q3W, STRENGTH: 45 MG
     Route: 058
     Dates: start: 20240507
  3. WINREVAIR [Suspect]
     Active Substance: SOTATERCEPT-CSRK
     Dosage: 0.4 MILLILITER, Q3W, STRENGTH: 45 MG
     Route: 058
     Dates: start: 20240513
  4. OPSUMIT [Concomitant]
     Active Substance: MACITENTAN
  5. UPTRAVI [Concomitant]
     Active Substance: SELEXIPAG
  6. BUMETANIDE [Concomitant]
     Active Substance: BUMETANIDE
  7. MACITENTAN\TADALAFIL [Concomitant]
     Active Substance: MACITENTAN\TADALAFIL
  8. VITAMINS [Concomitant]
     Active Substance: VITAMINS

REACTIONS (5)
  - Syncope [Unknown]
  - Heavy menstrual bleeding [Unknown]
  - Blood urine present [Not Recovered/Not Resolved]
  - Diarrhoea [Unknown]
  - Inappropriate schedule of product administration [Unknown]

NARRATIVE: CASE EVENT DATE: 20240101
